FAERS Safety Report 10756309 (Version 1)
Quarter: 2015Q1

REPORT INFORMATION
  Report Type: Report from Study
  Country: FR (occurrence: FR)
  Receive Date: 20150202
  Receipt Date: 20150202
  Transmission Date: 20150721
  Serious: Yes (Death)
  Sender: FDA-Public Use
  Company Number: FR-BAXTER-2015BAX005360

PATIENT

DRUGS (5)
  1. HOLOXAN 2000 MG, POUDRE POUR USAGE PARENT?RAL [Suspect]
     Active Substance: IFOSFAMIDE
     Indication: GERM CELL CANCER METASTATIC
     Dosage: ON DAY 1-5, 4 CYCLES
     Route: 065
  2. UROMITEXAN 1 G/10 ML, SOLUTION INJECTABLE POUR PERFUSION EN FLACON [Suspect]
     Active Substance: MESNA
     Indication: GERM CELL CANCER METASTATIC
     Dosage: H0, H3, H7, AND H11 ON DAY 1-5
     Route: 042
  3. LENOGRASTIME G-CSF [Suspect]
     Active Substance: LENOGRASTIM
     Indication: GERM CELL CANCER METASTATIC
     Dosage: ON 7-14, 4 CYCLES
     Route: 065
  4. GEMCITABINE [Suspect]
     Active Substance: GEMCITABINE\GEMCITABINE HYDROCHLORIDE
     Indication: GERM CELL CANCER METASTATIC
     Dosage: ON DAY 1 AND 5, 4 CYCLES
     Route: 065
  5. CISPLATIN. [Suspect]
     Active Substance: CISPLATIN
     Indication: GERM CELL CANCER METASTATIC
     Dosage: ON DAY 1-5, 4 CYCLES
     Route: 065

REACTIONS (3)
  - Malignant neoplasm progression [Unknown]
  - Toxicity to various agents [Fatal]
  - Germ cell neoplasm [None]
